FAERS Safety Report 5774908-9 (Version None)
Quarter: 2008Q2

REPORT INFORMATION
  Report Type: 
  Country: None (occurrence: None)
  Receive Date: 20080616
  Receipt Date: 20080616
  Transmission Date: 20081010
  Serious: Yes (Hospitalization)
  Sender: FDA-Public Use
  Company Number: None

PATIENT
  Sex: Female
  Weight: 55 kg

DRUGS (6)
  1. CYCLOPHOSPHAMIDE [Suspect]
     Dosage: 1170 MG
  2. DOXORUBICIN HYDROCHLORIDE [Suspect]
     Dosage: 64 MG
  3. ETOPOSIDE [Suspect]
     Dosage: 312 MG
  4. PREDNISONE [Suspect]
     Dosage: 720 MG
  5. RITUXIMAB (MOAB C2B8 ANTI CD20, CHIMERIC) [Suspect]
     Dosage: 585 MG
  6. VINCRISTINE SULFATE [Suspect]
     Dosage: 2 MG

REACTIONS (6)
  - ARTHRALGIA [None]
  - DYSPHAGIA [None]
  - MENTAL STATUS CHANGES [None]
  - MUSCLE TIGHTNESS [None]
  - OESOPHAGEAL CANDIDIASIS [None]
  - ORAL INTAKE REDUCED [None]
